FAERS Safety Report 13385341 (Version 2)
Quarter: 2017Q3

REPORT INFORMATION
  Report Type: Report from Study
  Country: None (occurrence: US)
  Receive Date: 20170329
  Receipt Date: 20170724
  Transmission Date: 20171127
  Serious: Yes (Hospitalization)
  Sender: FDA-Public Use
  Company Number: US-ABBVIE-17K-163-1920156-00

PATIENT
  Age: 58 Year
  Sex: Female

DRUGS (2)
  1. SEA SALT [Suspect]
     Active Substance: SEA SALT
     Indication: PRODUCT USED FOR UNKNOWN INDICATION
     Route: 065
  2. HUMIRA [Suspect]
     Active Substance: ADALIMUMAB
     Indication: PSORIATIC ARTHROPATHY
     Route: 058

REACTIONS (9)
  - Food allergy [Unknown]
  - Road traffic accident [Unknown]
  - Post-traumatic pain [Unknown]
  - Insomnia [Unknown]
  - Contusion [Unknown]
  - Urticaria [Recovered/Resolved]
  - Peripheral swelling [Unknown]
  - Head injury [Unknown]
  - Stress [Unknown]

NARRATIVE: CASE EVENT DATE: 201702
